FAERS Safety Report 9418754 (Version 1)
Quarter: 2013Q3

REPORT INFORMATION
  Report Type: Spontaneous
  Country: US (occurrence: US)
  Receive Date: 20130725
  Receipt Date: 20130725
  Transmission Date: 20140515
  Serious: No
  Sender: FDA-Public Use
  Company Number: US-PFIZER INC-2013216228

PATIENT
  Age: 73 Year
  Sex: Male
  Weight: 104.3 kg

DRUGS (2)
  1. LYRICA [Suspect]
     Indication: FIBROMYALGIA
     Dosage: 150 MG, 3X/DAY
     Route: 048
  2. METHADONE [Concomitant]
     Dosage: UNK

REACTIONS (1)
  - Neck pain [Unknown]
